FAERS Safety Report 24708810 (Version 1)
Quarter: 2024Q4

REPORT INFORMATION
  Report Type: Spontaneous
  Country: FR (occurrence: FR)
  Receive Date: 20241207
  Receipt Date: 20241207
  Transmission Date: 20250114
  Serious: Yes (Hospitalization, Other)
  Sender: ALEXION PHARMACEUTICALS
  Company Number: None

PATIENT
  Age: 69 Year
  Weight: 81.8 kg

DRUGS (50)
  1. QUETIAPINE FUMARATE [Suspect]
     Active Substance: QUETIAPINE FUMARATE
     Indication: Bipolar disorder
     Dosage: 800 MILLIGRAM, 400 MG 2 CPS AT BEDTIME
  2. QUETIAPINE FUMARATE [Suspect]
     Active Substance: QUETIAPINE FUMARATE
     Dosage: 800 MILLIGRAM, 400 MG 2 CPS AT BEDTIME
     Route: 048
  3. QUETIAPINE FUMARATE [Suspect]
     Active Substance: QUETIAPINE FUMARATE
     Dosage: 800 MILLIGRAM, 400 MG 2 CPS AT BEDTIME
  4. QUETIAPINE FUMARATE [Suspect]
     Active Substance: QUETIAPINE FUMARATE
     Dosage: 800 MILLIGRAM, 400 MG 2 CPS AT BEDTIME
     Route: 048
  5. HALOPERIDOL [Suspect]
     Active Substance: HALOPERIDOL
     Indication: Bipolar disorder
     Dosage: 10 DROP IN 1 DAY , 10 DROP
  6. HALOPERIDOL [Suspect]
     Active Substance: HALOPERIDOL
     Dosage: 10 DROP IN 1 DAY , 10 DROP
     Route: 048
  7. HALOPERIDOL [Suspect]
     Active Substance: HALOPERIDOL
     Dosage: 10 DROP IN 1 DAY , 10 DROP
  8. HALOPERIDOL [Suspect]
     Active Substance: HALOPERIDOL
     Dosage: 10 DROP IN 1 DAY , 10 DROP
     Route: 048
  9. TERALITHE [Suspect]
     Active Substance: LITHIUM CARBONATE
     Indication: Bipolar disorder
     Dosage: 800 MILLIGRAM, 400 MG 2 CPS AT NIGHT
  10. TERALITHE [Suspect]
     Active Substance: LITHIUM CARBONATE
     Dosage: 800 MILLIGRAM, 400 MG 2 CPS AT NIGHT
     Route: 048
  11. TERALITHE [Suspect]
     Active Substance: LITHIUM CARBONATE
     Dosage: 800 MILLIGRAM, QD
  12. TERALITHE [Suspect]
     Active Substance: LITHIUM CARBONATE
     Dosage: 800 MILLIGRAM, QD
     Route: 048
  13. TERALITHE [Suspect]
     Active Substance: LITHIUM CARBONATE
     Dosage: 600 MILLIGRAM, QD
  14. TERALITHE [Suspect]
     Active Substance: LITHIUM CARBONATE
     Dosage: 600 MILLIGRAM, QD
     Route: 048
  15. TERALITHE [Suspect]
     Active Substance: LITHIUM CARBONATE
     Dosage: 800 MILLIGRAM, THERAPEUTIC WINDOW AND GRADUAL RESUMPTION
  16. TERALITHE [Suspect]
     Active Substance: LITHIUM CARBONATE
     Dosage: 800 MILLIGRAM, THERAPEUTIC WINDOW AND GRADUAL RESUMPTION
     Route: 048
  17. TERALITHE [Suspect]
     Active Substance: LITHIUM CARBONATE
     Dosage: 200 MILLIGRAM, QD
  18. TERALITHE [Suspect]
     Active Substance: LITHIUM CARBONATE
     Dosage: 200 MILLIGRAM, QD
     Route: 048
  19. TERALITHE [Suspect]
     Active Substance: LITHIUM CARBONATE
     Dosage: 400 MILLIGRAM, QD
  20. TERALITHE [Suspect]
     Active Substance: LITHIUM CARBONATE
     Dosage: 400 MILLIGRAM, QD
     Route: 048
  21. LOXAPINE [Suspect]
     Active Substance: LOXAPINE
     Indication: Psychiatric decompensation
     Dosage: 25 MG MORNING, NOON AND 100 MG IN THE EVENING, THEN 50 MG MORNING, NOON AND 100 MG IN THE EVENING SI
     Route: 048
  22. LOXAPINE [Suspect]
     Active Substance: LOXAPINE
     Dosage: 25 MG MORNING, NOON AND 100 MG IN THE EVENING, THEN 50 MG MORNING, NOON AND 100 MG IN THE EVENING SI
  23. IMOVANE [Suspect]
     Active Substance: ZOPICLONE
     Dosage: 7.5 MILLIGRAM, 7.5 MG 1 CAP AT BEDTIME
     Route: 065
  24. IMOVANE [Suspect]
     Active Substance: ZOPICLONE
     Dosage: 7.5 MILLIGRAM, 7.5 MG 1 CAP AT BEDTIME
     Route: 065
  25. VALIUM [Suspect]
     Active Substance: DIAZEPAM
     Dosage: 5 MILLIGRAM, QD, 5 MG 1 CAP AT BEDTIME (SINCE 06/2024)
     Route: 065
  26. VALIUM [Suspect]
     Active Substance: DIAZEPAM
     Dosage: 5 MILLIGRAM, QD, 5 MG 1 CAP AT BEDTIME (SINCE 06/2024)
     Route: 065
  27. GLUCOPHAGE [Suspect]
     Active Substance: METFORMIN HYDROCHLORIDE
     Dosage: 1000 MILLIGRAM, BID
     Route: 065
  28. GLUCOPHAGE [Suspect]
     Active Substance: METFORMIN HYDROCHLORIDE
     Dosage: 1000 MILLIGRAM, BID
     Route: 065
  29. ANETHOLTRITHION [Suspect]
     Active Substance: ANETHOLTRITHION
     Dosage: 1 TABLET MORNING, NOON AND EVENING
  30. ANETHOLTRITHION [Suspect]
     Active Substance: ANETHOLTRITHION
     Dosage: 1 TABLET MORNING, NOON AND EVENING
     Route: 048
  31. ANETHOLTRITHION [Suspect]
     Active Substance: ANETHOLTRITHION
     Dosage: 1 TABLET MORNING, NOON AND EVENING
  32. ANETHOLTRITHION [Suspect]
     Active Substance: ANETHOLTRITHION
     Dosage: 1 TABLET MORNING, NOON AND EVENING
     Route: 048
  33. ARTISIAL [Suspect]
     Active Substance: CALCIUM CHLORIDE\MAGNESIUM CHLORIDE\POTASSIUM CHLORIDE\POTASSIUM PHOSPHATE, DIBASIC\POTASSIUM PHOSPH
     Dosage: SPRAY 2 SPRAYS 3X/DAY
     Route: 065
  34. ARTISIAL [Suspect]
     Active Substance: CALCIUM CHLORIDE\MAGNESIUM CHLORIDE\POTASSIUM CHLORIDE\POTASSIUM PHOSPHATE, DIBASIC\POTASSIUM PHOSPH
     Dosage: SPRAY 2 SPRAYS 3X/DAY
     Route: 065
  35. FENOFIBRATE [Suspect]
     Active Substance: FENOFIBRATE
     Dosage: 1 DOSAGE FORM, QD
     Route: 065
  36. FENOFIBRATE [Suspect]
     Active Substance: FENOFIBRATE
     Dosage: 1 DOSAGE FORM, QD
     Route: 065
  37. FENOFIBRATE [Suspect]
     Active Substance: FENOFIBRATE
     Dosage: 1 DOSAGE FORM, QD
     Route: 065
  38. FENOFIBRATE [Suspect]
     Active Substance: FENOFIBRATE
     Dosage: 1 DOSAGE FORM, QD
     Route: 065
  39. SERETIDE [Suspect]
     Active Substance: FLUTICASONE PROPIONATE\SALMETEROL XINAFOATE
     Dosage: UNK UNK, BID
     Route: 065
  40. SERETIDE [Suspect]
     Active Substance: FLUTICASONE PROPIONATE\SALMETEROL XINAFOATE
     Dosage: UNK UNK, BID
     Route: 065
  41. ALBUTEROL [Suspect]
     Active Substance: ALBUTEROL
     Dosage: UNK, TID
     Route: 065
  42. ALBUTEROL [Suspect]
     Active Substance: ALBUTEROL
     Dosage: UNK, TID
     Route: 065
  43. ACETAMINOPHEN [Suspect]
     Active Substance: ACETAMINOPHEN
     Dosage: 500 MILLIGRAM, TID
     Route: 065
  44. ACETAMINOPHEN [Suspect]
     Active Substance: ACETAMINOPHEN
     Dosage: 500 MILLIGRAM, TID
     Route: 065
  45. ACETAMINOPHEN [Suspect]
     Active Substance: ACETAMINOPHEN
     Dosage: 1 GRAM, EVERY 4-6 HOURS
     Route: 065
  46. ACETAMINOPHEN [Suspect]
     Active Substance: ACETAMINOPHEN
     Dosage: 1 GRAM, EVERY 4-6 HOURS
     Route: 065
  47. TRANSIPEG (PEG3350\ELECTROLYTES) [Suspect]
     Active Substance: POLYETHYLENE GLYCOL 3350\POTASSIUM CHLORIDE\SODIUM BICARBONATE\SODIUM CHLORIDE\SODIUM SULFATE
     Dosage: 2 SACHETS MORNING AND MIDDAY
     Route: 065
  48. TRANSIPEG (PEG3350\ELECTROLYTES) [Suspect]
     Active Substance: POLYETHYLENE GLYCOL 3350\POTASSIUM CHLORIDE\SODIUM BICARBONATE\SODIUM CHLORIDE\SODIUM SULFATE
     Dosage: 2 SACHETS MORNING AND MIDDAY
     Route: 065
  49. POLYETHYLENE GLYCOL 4000 [Suspect]
     Active Substance: POLYETHYLENE GLYCOL 4000
     Dosage: 2 SACHETS MORNING AND MIDDAY
     Route: 065
  50. POLYETHYLENE GLYCOL 4000 [Suspect]
     Active Substance: POLYETHYLENE GLYCOL 4000
     Dosage: 2 SACHETS MORNING AND MIDDAY
     Route: 065

REACTIONS (6)
  - Neuroleptic malignant syndrome [Recovered/Resolved]
  - Faecaloma [Recovered/Resolved]
  - Impaired gastric emptying [Unknown]
  - Pulmonary embolism [Recovered/Resolved]
  - Extrapyramidal disorder [Recovered/Resolved]
  - Fall [Recovered/Resolved]
